FAERS Safety Report 16228202 (Version 2)
Quarter: 2019Q2

REPORT INFORMATION
  Report Type: Spontaneous
  Country: US (occurrence: US)
  Receive Date: 20190423
  Receipt Date: 20190424
  Transmission Date: 20190711
  Serious: Yes (Hospitalization, Other)
  Sender: FDA-Public Use
  Company Number: US-PFIZER INC-2019171473

PATIENT
  Age: 69 Year
  Sex: Male

DRUGS (20)
  1. INSPRA [Suspect]
     Active Substance: EPLERENONE
     Dosage: UNK
     Route: 065
  2. COLACE [Concomitant]
     Active Substance: DOCUSATE SODIUM
     Dosage: UNK
     Route: 065
  3. LOPRESSOR [Suspect]
     Active Substance: METOPROLOL TARTRATE
     Dosage: UNK
     Route: 065
  4. LIPITOR [Suspect]
     Active Substance: ATORVASTATIN CALCIUM
     Dosage: UNK
     Route: 065
  5. DEMADEX [Suspect]
     Active Substance: TORSEMIDE
     Dosage: UNK
     Route: 065
  6. HUMULIN R [Concomitant]
     Active Substance: INSULIN HUMAN
     Dosage: UNK
     Route: 065
  7. THALITONE [Suspect]
     Active Substance: CHLORTHALIDONE
     Dosage: UNK
     Route: 065
  8. ACETYLSALICYLIC ACID [Suspect]
     Active Substance: ASPIRIN
     Dosage: UNK
     Route: 065
  9. ZAROXOLYN [Suspect]
     Active Substance: METOLAZONE
     Dosage: UNK
     Route: 065
  10. ELIQUIS [Suspect]
     Active Substance: APIXABAN
     Dosage: UNK
     Route: 065
  11. PROTONIX [Concomitant]
     Active Substance: PANTOPRAZOLE SODIUM
     Dosage: UNK
     Route: 065
  12. VICTOZA [Concomitant]
     Active Substance: LIRAGLUTIDE
     Dosage: UNK
     Route: 065
  13. ANORO ELLIPTA [Concomitant]
     Active Substance: UMECLIDINIUM BROMIDE\VILANTEROL TRIFENATATE
     Dosage: INHALER
     Route: 055
  14. POTASSIUM CHLORIDE. [Concomitant]
     Active Substance: POTASSIUM CHLORIDE
     Dosage: UNK
     Route: 065
  15. IMDUR [Suspect]
     Active Substance: ISOSORBIDE MONONITRATE
     Dosage: UNK
     Route: 065
  16. PROAMATINE [Suspect]
     Active Substance: MIDODRINE HYDROCHLORIDE
     Dosage: 5 MILLIGRAM, Q8H
     Route: 065
  17. MOBIC [Concomitant]
     Active Substance: MELOXICAM
     Dosage: UNK
     Route: 065
  18. LEXAPRO [Concomitant]
     Active Substance: ESCITALOPRAM OXALATE
  19. ZYLOPRIM [Concomitant]
     Active Substance: ALLOPURINOL
     Dosage: UNK
     Route: 065
  20. NEURONTIN [Concomitant]
     Active Substance: GABAPENTIN
     Dosage: UNK
     Route: 065

REACTIONS (1)
  - Orthostatic hypotension [Recovered/Resolved]
